FAERS Safety Report 18355124 (Version 1)
Quarter: 2020Q4

REPORT INFORMATION
  Report Type: Spontaneous
  Country: US (occurrence: US)
  Receive Date: 20201006
  Receipt Date: 20201006
  Transmission Date: 20210114
  Serious: Yes (Hospitalization)
  Sender: FDA-Public Use
  Company Number: None

PATIENT
  Age: 94 Year
  Sex: Male

DRUGS (2)
  1. APIXABAN (APIXABAN 2..5MG TAB) [Suspect]
     Active Substance: APIXABAN
     Indication: ATRIAL FIBRILLATION
     Route: 048
     Dates: start: 20200306, end: 20200724
  2. ASPIRIN (ASPIRIN 81MG TAB EC) [Suspect]
     Active Substance: ASPIRIN
     Indication: ARTERIOSCLEROSIS
     Route: 048
     Dates: start: 20200306, end: 20200724

REACTIONS (1)
  - Gastrointestinal haemorrhage [None]

NARRATIVE: CASE EVENT DATE: 20200724
